FAERS Safety Report 15390221 (Version 8)
Quarter: 2020Q3

REPORT INFORMATION
  Report Type: Report from Study
  Country: US (occurrence: US)
  Receive Date: 20180917
  Receipt Date: 20200910
  Transmission Date: 20201102
  Serious: Yes (Hospitalization, Other)
  Sender: FDA-Public Use
  Company Number: PHEH2018US030608

PATIENT
  Sex: Female
  Weight: 67.13 kg

DRUGS (7)
  1. TICLOPIDINE [Suspect]
     Active Substance: TICLOPIDINE
     Indication: PRODUCT USED FOR UNKNOWN INDICATION
     Route: 065
  2. COUMADIN [Concomitant]
     Active Substance: WARFARIN SODIUM
     Indication: PRODUCT USED FOR UNKNOWN INDICATION
     Dosage: UNK
     Route: 065
  3. TIKOSYN [Interacting]
     Active Substance: DOFETILIDE
     Indication: ARRHYTHMIA
     Dosage: 250 UG, BID
     Route: 065
     Dates: start: 20181022
  4. COSENTYX [Suspect]
     Active Substance: SECUKINUMAB
     Indication: PSORIASIS
     Dosage: 300 MG, QD
     Route: 065
     Dates: start: 20170307, end: 20180415
  5. WARFARIN [Suspect]
     Active Substance: WARFARIN
     Indication: COAGULOPATHY
     Dosage: UNK
     Route: 065
  6. COSENTYX [Suspect]
     Active Substance: SECUKINUMAB
     Dosage: 300 MG, QMO
     Route: 065
     Dates: start: 20180715, end: 20181115
  7. ASPIRIN. [Concomitant]
     Active Substance: ASPIRIN
     Indication: PRODUCT USED FOR UNKNOWN INDICATION
     Dosage: UNK
     Route: 065

REACTIONS (16)
  - Gastrooesophageal reflux disease [Unknown]
  - Epigastric discomfort [Recovered/Resolved]
  - Sinus node dysfunction [Recovered/Resolved]
  - Staphylococcal infection [Unknown]
  - Dyspnoea [Recovered/Resolved]
  - Fatigue [Unknown]
  - Atrial fibrillation [Recovered/Resolved]
  - Hypovolaemic shock [Recovered/Resolved]
  - Haemorrhoids [Unknown]
  - Eructation [Recovered/Resolved]
  - Labyrinthitis [Unknown]
  - Influenza [Recovered/Resolved]
  - Vertigo [Unknown]
  - Ear infection [Unknown]
  - Abdominal pain upper [Unknown]
  - Dizziness [Unknown]

NARRATIVE: CASE EVENT DATE: 2017
